FAERS Safety Report 6599239-9 (Version None)
Quarter: 2010Q1

REPORT INFORMATION
  Report Type: 
  Country: None (occurrence: None)
  Receive Date: 20100224
  Receipt Date: 20100216
  Transmission Date: 20100710
  Serious: Yes (Other)
  Sender: FDA-Public Use
  Company Number: PHHY2008JP13130

PATIENT
  Sex: Female
  Weight: 58 kg

DRUGS (14)
  1. SIMULECT [Suspect]
     Indication: RENAL TRANSPLANT
     Dosage: 20 MG
     Route: 042
     Dates: start: 20060725, end: 20060725
  2. SIMULECT [Suspect]
     Dosage: 20 MG
     Route: 042
     Dates: start: 20060729, end: 20060729
  3. NEORAL [Suspect]
     Indication: RENAL TRANSPLANT
     Dosage: 400 MG PER DAY
     Route: 048
     Dates: start: 20060723, end: 20060724
  4. SANDIMMUNE [Suspect]
     Indication: RENAL TRANSPLANT
     Dosage: 115 MG PER DAY
     Route: 042
     Dates: start: 20060725, end: 20060730
  5. PROGRAF [Concomitant]
     Indication: RENAL TRANSPLANT
     Dosage: 1.8 MG PER DAY
     Route: 042
     Dates: start: 20060730, end: 20060803
  6. PROGRAF [Concomitant]
     Dosage: 18 MG PER DAY
     Route: 048
     Dates: start: 20060804
  7. SOLU-MEDROL [Concomitant]
     Indication: RENAL TRANSPLANT
     Dosage: 250 MG PER DAY
     Route: 042
     Dates: start: 20060725
  8. SOLU-MEDROL [Concomitant]
     Dosage: 125 MG PER DAY
     Route: 042
  9. SOLU-MEDROL [Concomitant]
     Dosage: 62.5 MG PER DAY
     Route: 042
     Dates: end: 20060730
  10. BREDININ [Concomitant]
     Indication: RENAL TRANSPLANT
     Dosage: 50 MG PER DAY
     Route: 048
     Dates: start: 20060802
  11. BREDININ [Concomitant]
     Dosage: 150 MG PER DAY
     Route: 048
  12. BREDININ [Concomitant]
     Dosage: 200 MG PER DAY
     Route: 048
  13. MEDROL [Concomitant]
     Indication: RENAL TRANSPLANT
     Dosage: 28 MG PER DAY
     Route: 048
     Dates: start: 20060731
  14. MEDROL [Concomitant]
     Dosage: 4 MG PER DAY
     Route: 048

REACTIONS (6)
  - ARTERIAL DISORDER [None]
  - BLOOD CREATININE INCREASED [None]
  - COMPLICATIONS OF TRANSPLANTED KIDNEY [None]
  - FOCAL SEGMENTAL GLOMERULOSCLEROSIS [None]
  - IGA NEPHROPATHY [None]
  - RENAL TUBULAR NECROSIS [None]
